FAERS Safety Report 7326932-2 (Version None)
Quarter: 2011Q1

REPORT INFORMATION
  Report Type: 
  Country: None (occurrence: None)
  Receive Date: 20110222
  Receipt Date: 20100202
  Transmission Date: 20110831
  Serious: Yes (Life-Threatening, Hospitalization)
  Sender: FDA-Public Use
  Company Number: 1089

PATIENT
  Age: 84 Year
  Sex: Female

DRUGS (6)
  1. FUROSEMIDE [Concomitant]
  2. ACENOCOUMAROL 4 MG [Suspect]
     Indication: DEEP VEIN THROMBOSIS
     Dosage: 4 MG, DAILY, ORAL
     Route: 048
  3. ACENOCOUMAROL 4 MG [Suspect]
     Indication: ATRIAL FIBRILLATION
     Dosage: 4 MG, DAILY, ORAL
     Route: 048
  4. IRBESARTAN [Concomitant]
  5. URAPIDIL [Concomitant]
  6. ECONAZOLE LOTION 1% [Suspect]
     Indication: DERMATITIS
     Dosage: 1%, 3X DAILY, TOPICAL
     Route: 061

REACTIONS (10)
  - RENAL FAILURE [None]
  - TONSILLAR HAEMORRHAGE [None]
  - RESPIRATORY FAILURE [None]
  - COAGULOPATHY [None]
  - DYSPNOEA [None]
  - SPEECH DISORDER [None]
  - DRUG INTERACTION [None]
  - PHARYNGEAL HAEMATOMA [None]
  - MOUTH HAEMORRHAGE [None]
  - UPPER AIRWAY OBSTRUCTION [None]
